FAERS Safety Report 23501546 (Version 1)
Quarter: 2024Q1

REPORT INFORMATION
  Report Type: Spontaneous
  Country: IT (occurrence: IT)
  Receive Date: 20240208
  Receipt Date: 20240208
  Transmission Date: 20240410
  Serious: Yes (Life-Threatening)
  Sender: FDA-Public Use
  Company Number: None

PATIENT
  Age: 14 Year
  Sex: Female

DRUGS (2)
  1. ARIPIPRAZOLE [Suspect]
     Active Substance: ARIPIPRAZOLE
     Indication: Suicide attempt
     Dosage: 5 MG/ARIPIPRAZOLE
     Route: 048
     Dates: start: 20231002, end: 20231002
  2. LITHIUM SULFATE [Suspect]
     Active Substance: LITHIUM SULFATE
     Indication: Drug abuse
     Dosage: 83 MG
     Route: 048
     Dates: start: 20231002, end: 20231002

REACTIONS (4)
  - Suicide attempt [Recovered/Resolved]
  - Drug abuse [Recovered/Resolved]
  - Nausea [Recovering/Resolving]
  - Toxicity to various agents [Recovered/Resolved]

NARRATIVE: CASE EVENT DATE: 20231002
